FAERS Safety Report 12654651 (Version 1)
Quarter: 2016Q3

REPORT INFORMATION
  Report Type: Spontaneous
  Country: US (occurrence: None)
  Receive Date: 20160815
  Receipt Date: 20160815
  Transmission Date: 20161109
  Serious: Yes (Other)
  Sender: FDA-Public Use
  Company Number: None

PATIENT
  Age: 51 Year
  Sex: Female
  Weight: 97.98 kg

DRUGS (6)
  1. COCONUT OIL [Concomitant]
     Active Substance: COCONUT OIL
  2. BUPROPION HYDROCHLORIDE XL [Suspect]
     Active Substance: BUPROPION HYDROCHLORIDE
     Indication: DEPRESSION
     Route: 048
     Dates: start: 20160803
  3. SYNTHROID [Concomitant]
     Active Substance: LEVOTHYROXINE SODIUM
  4. CYMBALTA [Concomitant]
     Active Substance: DULOXETINE HYDROCHLORIDE
  5. TOPAMAX [Concomitant]
     Active Substance: TOPIRAMATE
  6. ZIAC [Concomitant]
     Active Substance: BISOPROLOL FUMARATE\HYDROCHLOROTHIAZIDE

REACTIONS (17)
  - Product quality issue [None]
  - Formication [None]
  - Malaise [None]
  - Panic disorder [None]
  - Impaired work ability [None]
  - Nausea [None]
  - Disturbance in attention [None]
  - Abdominal pain upper [None]
  - Abdominal distension [None]
  - Product formulation issue [None]
  - Headache [None]
  - Fatigue [None]
  - Arthralgia [None]
  - Hyperacusis [None]
  - Abdominal discomfort [None]
  - Impaired driving ability [None]
  - Psychotic disorder [None]

NARRATIVE: CASE EVENT DATE: 20160808
